FAERS Safety Report 7620804-1 (Version None)
Quarter: 2011Q3

REPORT INFORMATION
  Report Type: 
  Country: None (occurrence: None)
  Receive Date: 20110719
  Receipt Date: 20110708
  Transmission Date: 20111222
  Serious: Yes (Other)
  Sender: FDA-Public Use
  Company Number: PHHY2011GB61006

PATIENT
  Age: 34 Year
  Sex: Female
  Weight: 45 kg

DRUGS (13)
  1. PULMOZYME [Concomitant]
     Indication: CYSTIC FIBROSIS
     Dosage: 2.5 MG, UNK
  2. IPRATROPIUM BROMIDE [Concomitant]
  3. CREON [Concomitant]
     Indication: CYSTIC FIBROSIS
     Dosage: 25000 OT, UNK
     Route: 048
  4. HUMULIN S [Concomitant]
     Indication: CYSTIC FIBROSIS
     Route: 058
  5. OMEPRAZOLE [Concomitant]
     Dosage: 20 MG, BID
  6. HUMALOG [Concomitant]
     Indication: CYSTIC FIBROSIS
     Route: 058
  7. LANTUS [Concomitant]
     Indication: CYSTIC FIBROSIS
     Route: 058
  8. SERETIDE [Concomitant]
     Indication: CYSTIC FIBROSIS
  9. SODIUM CHLORIDE [Concomitant]
     Indication: CYSTIC FIBROSIS
  10. VITAMIN E [Concomitant]
     Indication: CYSTIC FIBROSIS
     Route: 048
  11. VITAMIN A AND D IN COMBINATION [Concomitant]
     Indication: CYSTIC FIBROSIS
     Route: 048
  12. MEROPENEM [Suspect]
     Indication: INFECTIVE PULMONARY EXACERBATION OF CYSTIC FIBROSIS
     Dosage: 2 G, TID
     Route: 042
  13. COLISTIN SULFATE [Concomitant]
     Indication: CYSTIC FIBROSIS
     Dosage: 2 MU, BID
     Route: 048

REACTIONS (4)
  - MALAISE [None]
  - ERYTHEMA [None]
  - DYSPNOEA [None]
  - FEELING HOT [None]
